FAERS Safety Report 20005103 (Version 3)
Quarter: 2022Q1

REPORT INFORMATION
  Report Type: Spontaneous
  Country: CO (occurrence: CO)
  Receive Date: 20211027
  Receipt Date: 20220106
  Transmission Date: 20220423
  Serious: No
  Sender: FDA-Public Use
  Company Number: CO-PFIZER INC-2021148694

PATIENT
  Sex: Female

DRUGS (1)
  1. GENOTROPIN [Suspect]
     Active Substance: SOMATROPIN
     Dosage: UNK

REACTIONS (5)
  - Poor quality device used [Unknown]
  - Device failure [Unknown]
  - Device information output issue [Unknown]
  - Device issue [Unknown]
  - Device mechanical issue [Unknown]
